FAERS Safety Report 24163378 (Version 2)
Quarter: 2024Q3

REPORT INFORMATION
  Report Type: Spontaneous
  Country: US (occurrence: US)
  Receive Date: 20240801
  Receipt Date: 20240916
  Transmission Date: 20241017
  Serious: Yes (Other)
  Sender: ORGANON
  Company Number: US-ORGANON-O2407USA002845

PATIENT
  Sex: Female
  Weight: 52.698 kg

DRUGS (2)
  1. NEXPLANON [Suspect]
     Active Substance: ETONOGESTREL
     Indication: Contraception
     Dosage: 1 IMPLANT (68 MG) IN LEFT UPPER ARM
     Route: 058
     Dates: start: 20240507, end: 20240722
  2. CEPHALEXIN [Concomitant]
     Active Substance: CEPHALEXIN
     Dosage: UNK (FILLED)
     Dates: start: 20240512

REACTIONS (16)
  - Device expulsion [Recovered/Resolved]
  - Implant site erythema [Unknown]
  - Implant site warmth [Unknown]
  - Implant site induration [Unknown]
  - Memory impairment [Unknown]
  - Disturbance in attention [Unknown]
  - Myalgia [Unknown]
  - Back pain [Unknown]
  - Implant site inflammation [Recovering/Resolving]
  - Implant site pain [Recovering/Resolving]
  - Implant site swelling [Recovering/Resolving]
  - Implant site infection [Recovering/Resolving]
  - Purulent discharge [Recovering/Resolving]
  - Medical device site scab [Recovering/Resolving]
  - Maternal exposure during breast feeding [Unknown]
  - Complication associated with device [Recovered/Resolved]

NARRATIVE: CASE EVENT DATE: 20240101
